FAERS Safety Report 4523820-1 (Version None)
Quarter: 2004Q4

REPORT INFORMATION
  Report Type: 
  Country: None (occurrence: None)
  Receive Date: 20041210
  Receipt Date: 20041210
  Transmission Date: 20050328
  Serious: Yes (Hospitalization, Disabling)
  Sender: FDA-Public Use
  Company Number: None

PATIENT
  Age: 42 Year
  Sex: Female
  Weight: 68.0396 kg

DRUGS (4)
  1. PAXIL [Suspect]
     Indication: ANXIETY
     Dosage: 1 PER DAY
     Dates: start: 20020205, end: 20020428
  2. PAXIL [Suspect]
     Indication: PANIC DISORDER
     Dosage: 1 PER DAY
     Dates: start: 20020205, end: 20020428
  3. EFFEXOR [Suspect]
     Indication: ANXIETY
     Dosage: 1 PER DAY
     Dates: start: 20020709, end: 20021114
  4. EFFEXOR [Suspect]
     Indication: PANIC DISORDER
     Dosage: 1 PER DAY
     Dates: start: 20020709, end: 20021114

REACTIONS (14)
  - ACTIVITIES OF DAILY LIVING IMPAIRED [None]
  - AMNESIA [None]
  - ANGER [None]
  - ANOREXIA [None]
  - ANXIETY [None]
  - IMPAIRED WORK ABILITY [None]
  - MEDICATION ERROR [None]
  - MENTAL DISORDER [None]
  - PARANOIA [None]
  - PERSONALITY CHANGE [None]
  - SOCIAL PROBLEM [None]
  - SUICIDAL IDEATION [None]
  - THINKING ABNORMAL [None]
  - TREMOR [None]
